FAERS Safety Report 5836262-3 (Version None)
Quarter: 2008Q3

REPORT INFORMATION
  Report Type: 
  Country: None (occurrence: None)
  Receive Date: 20080807
  Receipt Date: 20080801
  Transmission Date: 20090109
  Serious: Yes (Other)
  Sender: FDA-Public Use
  Company Number: US-RANBAXY-2008US-16737

PATIENT

DRUGS (3)
  1. ISOTRETINOIN [Suspect]
     Indication: DRUG USE FOR UNKNOWN INDICATION
     Dosage: 40 MG, BID
     Route: 048
     Dates: start: 20080116, end: 20080101
  2. ISOTRETINOIN [Suspect]
     Dosage: 20 MG, QD
  3. ISOTRETINOIN [Suspect]
     Dosage: 30 MG, QD

REACTIONS (1)
  - PREGNANCY [None]
